FAERS Safety Report 10949796 (Version 1)
Quarter: 2015Q1

REPORT INFORMATION
  Report Type: Report from Study
  Country: FR (occurrence: FR)
  Receive Date: 20150324
  Receipt Date: 20150324
  Transmission Date: 20150721
  Serious: Yes (Hospitalization, Other)
  Sender: FDA-Public Use
  Company Number: FR-SHIRE-FR201502561

PATIENT

DRUGS (3)
  1. IDURSULFASE [Suspect]
     Active Substance: IDURSULFASE
     Indication: MUCOPOLYSACCHARIDOSIS II
     Dosage: 1 MG/KG, 1X/WEEK
     Route: 041
     Dates: start: 20100210
  2. IDURSULFASE [Suspect]
     Active Substance: IDURSULFASE
     Dosage: 0.56 - 0.58 MG/KG, 1X/WEEK
     Route: 041
  3. OTHER THERAPEUTIC PRODUCTS [Concomitant]
     Active Substance: UNSPECIFIED INGREDIENT
     Indication: PREMEDICATION
     Dosage: UNK, UNKNOWN
     Route: 065

REACTIONS (1)
  - Pneumonia aspiration [Unknown]
